FAERS Safety Report 24983363 (Version 3)
Quarter: 2025Q1

REPORT INFORMATION
  Report Type: Report from Study
  Country: AR (occurrence: AR)
  Receive Date: 20250219
  Receipt Date: 20250325
  Transmission Date: 20250408
  Serious: Yes (Other)
  Sender: AMGEN
  Company Number: AR-AMGEN-ARGSL2024224952

PATIENT
  Age: 70 Year
  Sex: Female

DRUGS (1)
  1. VECTIBIX [Suspect]
     Active Substance: PANITUMUMAB
     Indication: Colorectal cancer
     Route: 065
     Dates: start: 20241104

REACTIONS (21)
  - Rectal haemorrhage [Unknown]
  - Bedridden [Unknown]
  - Musculoskeletal pain [Unknown]
  - Skin irritation [Unknown]
  - Headache [Unknown]
  - Fatigue [Unknown]
  - Alopecia [Unknown]
  - Cough [Unknown]
  - Asthenia [Unknown]
  - Acne [Unknown]
  - Pruritus [Unknown]
  - Rash [Unknown]
  - Depressed mood [Unknown]
  - Haemorrhoids [Unknown]
  - Dysphonia [Unknown]
  - Laryngitis [Unknown]
  - Mouth ulceration [Unknown]
  - Pain in extremity [Unknown]
  - Skin fissures [Not Recovered/Not Resolved]
  - Emotional disorder [Unknown]
  - Crying [Unknown]

NARRATIVE: CASE EVENT DATE: 20240101
